FAERS Safety Report 20299703 (Version 1)
Quarter: 2022Q1

REPORT INFORMATION
  Report Type: Spontaneous
  Country: ET (occurrence: ET)
  Receive Date: 20220105
  Receipt Date: 20220105
  Transmission Date: 20220423
  Serious: Yes (Hospitalization, Other)
  Sender: FDA-Public Use
  Company Number: ET-LUPIN PHARMACEUTICALS INC.-2021-26168

PATIENT
  Sex: Female

DRUGS (4)
  1. CEFTRIAXONE [Suspect]
     Active Substance: CEFTRIAXONE
     Indication: Antibiotic prophylaxis
     Dosage: 2 GRAM
     Route: 065
     Dates: start: 2021
  2. LIDOCAINE [Suspect]
     Active Substance: LIDOCAINE
     Indication: Local anaesthesia
     Dosage: 3 MILLILITER
     Route: 065
     Dates: start: 2021
  3. BUPIVACAINE [Suspect]
     Active Substance: BUPIVACAINE
     Indication: Spinal anaesthesia
     Dosage: 10 MG (IN SITTING POSITIONING BETWEEN L3 AND L4 INTERSPACES BUPIVACAINE WAS ADMINISTERED FOR SPINAL
     Route: 065
     Dates: start: 2021
  4. FENTANYL [Suspect]
     Active Substance: FENTANYL
     Indication: Spinal anaesthesia
     Dosage: 10 MICROGRAM (IN SITTING POSITIONING BETWEEN L3 AND L4 INTERSPACES FENTANYL 10MG WAS ADMINISTERED FO
     Route: 065
     Dates: start: 2021

REACTIONS (2)
  - Exposure during pregnancy [Unknown]
  - Meningitis [Unknown]

NARRATIVE: CASE EVENT DATE: 20210101
